FAERS Safety Report 5033551-X (Version None)
Quarter: 2006Q2

REPORT INFORMATION
  Report Type: 
  Country: None (occurrence: None)
  Receive Date: 20060623
  Receipt Date: 20060327
  Transmission Date: 20061013
  Serious: Yes (Congenital Anomaly)
  Sender: FDA-Public Use
  Company Number: GB-ROCHE-441973

PATIENT
  Sex: Female
  Weight: 2.9 kg

DRUGS (1)
  1. CELLCEPT [Suspect]
     Indication: ERYTHEMA MULTIFORME
     Dosage: PATIENT RECEIVED IT FOR 2-4 DAYS

REACTIONS (4)
  - APGAR SCORE LOW [None]
  - DRUG EXPOSURE DURING PREGNANCY [None]
  - OCULOAURICULOVERTEBRAL DYSPLASIA [None]
  - TERATOGENICITY [None]
